FAERS Safety Report 5494316-8 (Version None)
Quarter: 2007Q4

REPORT INFORMATION
  Report Type: 
  Country: None (occurrence: None)
  Receive Date: 20071015
  Receipt Date: 20070803
  Transmission Date: 20080405
  Serious: No
  Sender: FDA-Public Use
  Company Number: 2007SP002738

PATIENT
  Age: 83 Year
  Sex: Male

DRUGS (14)
  1. LUNESTA [Suspect]
     Indication: INSOMNIA
     Dosage: 3 MG;HS;ORAL
     Route: 048
     Dates: start: 20070731, end: 20070802
  2. CARTIA XT [Concomitant]
  3. LISINOPRIL [Concomitant]
  4. GABAPENTIN [Concomitant]
  5. PANTOPRAZOLE SODIUM [Concomitant]
  6. LOVASTATIN [Concomitant]
  7. CLONIDINE [Concomitant]
  8. QUININE SULFATE [Concomitant]
  9. FLOMAX [Concomitant]
  10. CYANOCOBALAMIN [Concomitant]
  11. TYLENOL [Concomitant]
  12. FOLIC ACID [Concomitant]
  13. VITAMINS [Concomitant]
  14. HALCION [Concomitant]

REACTIONS (2)
  - BALANCE DISORDER [None]
  - MIDDLE INSOMNIA [None]
